FAERS Safety Report 6542837-9 (Version None)
Quarter: 2010Q1

REPORT INFORMATION
  Report Type: 
  Country: None (occurrence: None)
  Receive Date: 20100119
  Receipt Date: 20100114
  Transmission Date: 20100710
  Serious: Yes (Death)
  Sender: FDA-Public Use
  Company Number: GB-ALLERGAN-0904716US

PATIENT
  Age: 79 Year
  Sex: Male
  Weight: 68.4 kg

DRUGS (8)
  1. PREDNISOLONE ACETATE [Suspect]
     Indication: DRUG USE FOR UNKNOWN INDICATION
  2. ACETYLCYSTEINE [Suspect]
     Indication: IDIOPATHIC PULMONARY FIBROSIS
     Dosage: 600 MG, TID
     Route: 048
     Dates: start: 20081114, end: 20081226
  3. ALENDRONATE SODIUM [Suspect]
     Indication: DRUG USE FOR UNKNOWN INDICATION
     Dosage: 70 MG, Q WEEK
     Route: 048
     Dates: start: 20081114
  4. AZATHIOPRINE [Suspect]
     Indication: IDIOPATHIC PULMONARY FIBROSIS
     Dosage: 125 MG, QD
     Route: 048
     Dates: start: 20081114, end: 20081226
  5. OMEPRAZOLE [Suspect]
     Indication: DRUG USE FOR UNKNOWN INDICATION
     Route: 048
     Dates: start: 20081114
  6. WARFARIN [Concomitant]
     Indication: MITRAL VALVE REPLACEMENT
     Dosage: UNK, UNK
     Dates: start: 20050101
  7. ATORVASTATIN [Concomitant]
     Dosage: 20 MG, QD
  8. CANDESARTAN CILEXETIL [Concomitant]
     Dosage: 16 MG, UNK

REACTIONS (4)
  - NEUTROPENIA [None]
  - RASH MACULAR [None]
  - SEPSIS [None]
  - TOXIC EPIDERMAL NECROLYSIS [None]
